FAERS Safety Report 23112336 (Version 2)
Quarter: 2023Q4

REPORT INFORMATION
  Report Type: Spontaneous
  Country: BR (occurrence: BR)
  Receive Date: 20231027
  Receipt Date: 20231106
  Transmission Date: 20240110
  Serious: Yes (Other)
  Sender: FDA-Public Use
  Company Number: BR-009507513-2310BRA010622

PATIENT
  Age: 69 Year
  Sex: Female

DRUGS (13)
  1. PEMBROLIZUMAB [Suspect]
     Active Substance: PEMBROLIZUMAB
     Indication: Lung adenocarcinoma
     Dosage: CARBOPLATIN + PEMETREXED + PEMBROLIZUMAB X 4
     Dates: start: 20190814, end: 20191016
  2. PEMBROLIZUMAB [Suspect]
     Active Substance: PEMBROLIZUMAB
     Dosage: PEMBROLIZUMAB + PEMETREXED FOR MAINTENANCE
     Dates: start: 20191113, end: 202108
  3. PEMBROLIZUMAB [Suspect]
     Active Substance: PEMBROLIZUMAB
     Dosage: CARBOPLATIN + PEMETREXED + PEMBROLIZUMAB X 4
     Dates: start: 20230224, end: 20230428
  4. PEMBROLIZUMAB [Suspect]
     Active Substance: PEMBROLIZUMAB
     Dosage: PEMBROLIZUMAB + PEMETREXED FOR MAINTENANCE
     Dates: start: 20230519, end: 20230922
  5. PEMBROLIZUMAB [Suspect]
     Active Substance: PEMBROLIZUMAB
     Dosage: UNK
     Dates: start: 2023
  6. CARBOPLATIN [Suspect]
     Active Substance: CARBOPLATIN
     Indication: Lung adenocarcinoma
     Dosage: CARBOPLATIN + PEMETREXED + PEMBROLIZUMAB X 4
     Dates: start: 20190814, end: 20191016
  7. CARBOPLATIN [Suspect]
     Active Substance: CARBOPLATIN
     Dosage: CARBOPLATIN + PEMETREXED + PEMBROLIZUMAB X 4
     Dates: start: 20230224, end: 20230428
  8. PEMETREXED [Suspect]
     Active Substance: PEMETREXED
     Indication: Lung adenocarcinoma
     Dosage: CARBOPLATIN + PEMETREXED + PEMBROLIZUMAB X 4
     Dates: start: 20190814, end: 20191016
  9. PEMETREXED [Suspect]
     Active Substance: PEMETREXED
     Dosage: UNK
     Dates: start: 20191113
  10. PEMETREXED [Suspect]
     Active Substance: PEMETREXED
     Dosage: CARBOPLATIN + PEMETREXED + PEMBROLIZUMAB X 4
     Dates: start: 20230224, end: 20230428
  11. PEMETREXED [Suspect]
     Active Substance: PEMETREXED
     Dosage: UNK
     Dates: start: 2023, end: 2023
  12. ENALAPRIL [Concomitant]
     Active Substance: ENALAPRIL
  13. ROSUVASTATIN [Concomitant]
     Active Substance: ROSUVASTATIN

REACTIONS (5)
  - Malignant neoplasm progression [Unknown]
  - Renal impairment [Unknown]
  - Transaminases increased [Unknown]
  - Therapy partial responder [Unknown]
  - Therapy partial responder [Unknown]

NARRATIVE: CASE EVENT DATE: 20190101
